FAERS Safety Report 24299969 (Version 1)
Quarter: 2024Q3

REPORT INFORMATION
  Report Type: Report from Study
  Country: US (occurrence: US)
  Receive Date: 20240909
  Receipt Date: 20240909
  Transmission Date: 20241017
  Serious: Yes (Hospitalization, Other)
  Sender: JAZZ
  Company Number: US-JAZZ PHARMACEUTICALS-2023-US-017314

PATIENT
  Age: 29 Year
  Sex: Female

DRUGS (17)
  1. EPIDIOLEX [Suspect]
     Active Substance: CANNABIDIOL
     Indication: Epilepsy
     Dosage: UNK
     Dates: start: 20230523
  2. EPIDIOLEX [Suspect]
     Active Substance: CANNABIDIOL
     Dosage: WEEK 1 AND 2 TAKE 1.8 ML BY MOUTH TWICE A DAY THEN WEEK 3 AND AFTER TAKE 3.6 ML
     Route: 048
  3. EPIDIOLEX [Suspect]
     Active Substance: CANNABIDIOL
     Dosage: WEEK 1 AND 2 TAKE 1.8 ML BY MOUTH TWICE A DAY THEN WEEK 3 AND AFTER TAKE 3.6 ML BY MOUTH  TWICE A DA
     Route: 048
  4. EPIDIOLEX [Suspect]
     Active Substance: CANNABIDIOL
     Dosage: 3.6 MILLILITER, BID
     Route: 048
  5. EPIDIOLEX [Suspect]
     Active Substance: CANNABIDIOL
     Dosage: 4 MILLILITER, BID
     Route: 048
  6. EPIDIOLEX [Suspect]
     Active Substance: CANNABIDIOL
     Dosage: WEEK 1 AND 2 TAKE 1.8 ML BY MOUTH TWICE A DAY THEN WEEK 3 AND AFTER TAKE 3.6 ML
     Route: 048
  7. EPIDIOLEX [Suspect]
     Active Substance: CANNABIDIOL
     Dosage: WEEK 1 AND 2 TAKE 1.8 ML BY MOUTH TWICE A DAY THEN WEEK 3 AND AFTER TAKE 3.6 ML BY MOUTH  TWICE A DA
     Route: 048
  8. TOPIRAMATE [Concomitant]
     Active Substance: TOPIRAMATE
     Indication: Product used for unknown indication
     Dosage: UNK
  9. TOPIRAMATE [Concomitant]
     Active Substance: TOPIRAMATE
     Dosage: UNK
  10. APTIOM [Concomitant]
     Active Substance: ESLICARBAZEPINE ACETATE
     Indication: Product used for unknown indication
     Dosage: UNK
  11. APTIOM [Concomitant]
     Active Substance: ESLICARBAZEPINE ACETATE
     Dosage: UNK
  12. ELEPSIA XR [Concomitant]
     Active Substance: LEVETIRACETAM
     Indication: Product used for unknown indication
     Dosage: UNK
  13. ELEPSIA XR [Concomitant]
     Active Substance: LEVETIRACETAM
     Dosage: UNK
  14. KEPPRA [Concomitant]
     Active Substance: LEVETIRACETAM
     Indication: Product used for unknown indication
     Dosage: UNK
  15. KEPPRA [Concomitant]
     Active Substance: LEVETIRACETAM
     Dosage: UNK
  16. SERTRALINE HYDROCHLORIDE [Concomitant]
     Active Substance: SERTRALINE HYDROCHLORIDE
     Indication: Product used for unknown indication
     Dosage: UNK
  17. SERTRALINE HYDROCHLORIDE [Concomitant]
     Active Substance: SERTRALINE HYDROCHLORIDE
     Dosage: UNK

REACTIONS (7)
  - Brain neoplasm [Unknown]
  - Cerebral haemorrhage [Unknown]
  - Seizure [Unknown]
  - Headache [Unknown]
  - Product dose omission issue [Unknown]
  - Product administration interrupted [Unknown]
  - Drug ineffective [Unknown]

NARRATIVE: CASE EVENT DATE: 20240801
